FAERS Safety Report 15650941 (Version 1)
Quarter: 2018Q4

REPORT INFORMATION
  Report Type: Spontaneous
  Country: CA (occurrence: CA)
  Receive Date: 20181123
  Receipt Date: 20181123
  Transmission Date: 20190205
  Serious: Yes (Congenital Anomaly, Other)
  Sender: FDA-Public Use
  Company Number: CA-APOTEX-2018AP025336

PATIENT
  Age: 7 Month

DRUGS (1)
  1. PAXIL [Suspect]
     Active Substance: PAROXETINE HYDROCHLORIDE
     Indication: PRODUCT USED FOR UNKNOWN INDICATION
     Dosage: UNK
     Route: 064

REACTIONS (7)
  - Musculoskeletal discomfort [Unknown]
  - Bone lesion [Unknown]
  - Joint injury [Unknown]
  - Foetal exposure during pregnancy [Unknown]
  - Tendonitis [Unknown]
  - Spina bifida [Unknown]
  - Foot deformity [Unknown]
